FAERS Safety Report 9385161 (Version 1)
Quarter: 2013Q3

REPORT INFORMATION
  Report Type: Spontaneous
  Country: PL (occurrence: PL)
  Receive Date: 20130705
  Receipt Date: 20130705
  Transmission Date: 20140515
  Serious: Yes (Other)
  Sender: FDA-Public Use
  Company Number: PL-ABBOTT-13X-129-1110725-00

PATIENT
  Age: 61 Year
  Sex: Male

DRUGS (2)
  1. CLARITHROMYCIN [Suspect]
     Indication: PRODUCT USED FOR UNKNOWN INDICATION
  2. CEFOTAXIM [Suspect]
     Indication: PRODUCT USED FOR UNKNOWN INDICATION

REACTIONS (1)
  - Clostridium difficile infection [Unknown]
